FAERS Safety Report 7939340-8 (Version None)
Quarter: 2011Q4

REPORT INFORMATION
  Report Type: 
  Country: None (occurrence: None)
  Receive Date: 20111125
  Receipt Date: 20110928
  Transmission Date: 20120403
  Serious: No
  Sender: FDA-Public Use
  Company Number: US-BAYER-2011-107926

PATIENT
  Sex: Male

DRUGS (6)
  1. LEUKINE [Suspect]
     Indication: PROSTATE CANCER METASTATIC
     Dosage: 250 ?G, QD
     Route: 058
     Dates: start: 20110920, end: 20110925
  2. ESTROGENIC SUBSTANCE [Concomitant]
  3. KETOCONAZOLE [Concomitant]
     Dosage: 200 MG, TID
  4. KETOCONAZOLE [Concomitant]
     Dosage: 300 MG, TID
  5. KETOCONAZOLE [Concomitant]
     Dosage: 400 MG, TID
  6. KETOCONAZOLE [Concomitant]
     Dosage: } 400 MG, TID

REACTIONS (4)
  - INFLAMMATION [None]
  - WOUND SECRETION [None]
  - INJECTION SITE ERYTHEMA [None]
  - INJECTION SITE PRURITUS [None]
